FAERS Safety Report 21448289 (Version 1)
Quarter: 2022Q4

REPORT INFORMATION
  Report Type: Spontaneous
  Country: FR (occurrence: FR)
  Receive Date: 20221013
  Receipt Date: 20221013
  Transmission Date: 20230113
  Serious: Yes (Death)
  Sender: FDA-Public Use
  Company Number: None

PATIENT
  Age: 69 Year
  Sex: Male

DRUGS (14)
  1. LENALIDOMIDE [Suspect]
     Active Substance: LENALIDOMIDE
     Indication: Central nervous system lymphoma
     Dosage: 21/28 JOURS?21/28 DAYS
     Route: 048
     Dates: start: 20220520, end: 20220609
  2. RITUXIMAB [Suspect]
     Active Substance: RITUXIMAB
     Indication: Central nervous system lymphoma
     Route: 042
     Dates: start: 20210329, end: 20210329
  3. RITUXIMAB [Suspect]
     Active Substance: RITUXIMAB
     Dates: start: 20210428, end: 20210428
  4. RITUXIMAB [Suspect]
     Active Substance: RITUXIMAB
     Dates: start: 20210623, end: 20210623
  5. RITUXIMAB [Suspect]
     Active Substance: RITUXIMAB
     Dates: start: 20220520, end: 20220520
  6. RITUXIMAB [Suspect]
     Active Substance: RITUXIMAB
     Dates: start: 20210526, end: 20210526
  7. RITUXIMAB [Suspect]
     Active Substance: RITUXIMAB
     Dates: start: 20211015, end: 20211015
  8. RITUXIMAB [Suspect]
     Active Substance: RITUXIMAB
     Dates: start: 20210804, end: 20210804
  9. DUPHALAC 10 g [Concomitant]
     Indication: Constipation
     Route: 048
  10. VIMPAT [Concomitant]
     Active Substance: LACOSAMIDE
     Indication: Central nervous system lymphoma
     Route: 048
  11. RISPERIDONE [Concomitant]
     Active Substance: RISPERIDONE
     Indication: Product used for unknown indication
     Route: 048
  12. MELATONIN [Concomitant]
     Active Substance: MELATONIN
     Indication: Insomnia
     Route: 048
  13. OXAZEPAM [Concomitant]
     Active Substance: OXAZEPAM
     Indication: Product used for unknown indication
     Route: 048
  14. CARBOMER [Concomitant]
     Active Substance: CARBOMER
     Indication: Product used for unknown indication

REACTIONS (1)
  - Myocarditis [Fatal]

NARRATIVE: CASE EVENT DATE: 20220610
